FAERS Safety Report 4871340-7 (Version None)
Quarter: 2006Q1

REPORT INFORMATION
  Report Type: 
  Country: None (occurrence: None)
  Receive Date: 20060103
  Receipt Date: 20051005
  Transmission Date: 20060701
  Serious: Yes (Hospitalization)
  Sender: FDA-Public Use
  Company Number: US-MERCK-0510USA04480

PATIENT
  Age: 73 Year
  Sex: Male
  Weight: 98 kg

DRUGS (9)
  1. VIOXX [Suspect]
     Indication: ARTHRITIS
     Route: 048
     Dates: start: 20000101, end: 20040901
  2. VIOXX [Suspect]
     Route: 048
     Dates: start: 20000101, end: 20040901
  3. VIOXX [Suspect]
     Route: 048
     Dates: start: 20000911, end: 20000914
  4. DILACOR XR [Concomitant]
     Route: 065
  5. TOPROL-XL [Concomitant]
     Route: 065
  6. PRILOSEC [Concomitant]
     Route: 065
  7. HYTRIN [Concomitant]
     Route: 065
  8. VITAMINS (UNSPECIFIED) [Concomitant]
     Route: 065
  9. PRAVACHOL [Concomitant]
     Route: 065

REACTIONS (14)
  - ANGINA PECTORIS [None]
  - APHASIA [None]
  - ARTHRALGIA [None]
  - BACK PAIN [None]
  - CARDIOVASCULAR DISORDER [None]
  - CATARACT [None]
  - CEREBROVASCULAR ACCIDENT [None]
  - CORONARY ARTERY DISEASE [None]
  - EYELID PTOSIS [None]
  - HIATUS HERNIA [None]
  - HYPERLIPIDAEMIA [None]
  - HYPERTENSION [None]
  - SHOULDER ARTHROPLASTY [None]
  - TRANSIENT ISCHAEMIC ATTACK [None]
